FAERS Safety Report 25520985 (Version 1)
Quarter: 2025Q3

REPORT INFORMATION
  Report Type: Spontaneous
  Country: US (occurrence: US)
  Receive Date: 20250705
  Receipt Date: 20250705
  Transmission Date: 20251020
  Serious: No
  Sender: UNITED THERAPEUTICS
  Company Number: US-UNITED THERAPEUTICS-UNT-2025-022974

PATIENT
  Sex: Male
  Weight: 97.506 kg

DRUGS (8)
  1. TYVASO DPI [Suspect]
     Active Substance: TREPROSTINIL
     Indication: Atrial septal defect
     Dosage: 64 ?G, QID
     Dates: start: 2025
  2. TYVASO DPI [Suspect]
     Active Substance: TREPROSTINIL
     Indication: Cardiomegaly
  3. TYVASO DPI [Suspect]
     Active Substance: TREPROSTINIL
     Indication: Atrial septal defect
  4. TYVASO DPI [Suspect]
     Active Substance: TREPROSTINIL
     Indication: Cardiomegaly
  5. ATORVASTATIN CALCIUM [Concomitant]
     Active Substance: ATORVASTATIN CALCIUM
     Indication: Product used for unknown indication
  6. MACITENTAN\TADALAFIL [Concomitant]
     Active Substance: MACITENTAN\TADALAFIL
     Indication: Product used for unknown indication
  7. CLARITIN [Concomitant]
     Active Substance: LORATADINE
     Indication: Product used for unknown indication
  8. OXYGEN [Concomitant]
     Active Substance: OXYGEN
     Indication: Product used for unknown indication

REACTIONS (4)
  - Throat irritation [Unknown]
  - Atrial septal defect [Unknown]
  - Cardiomegaly [Unknown]
  - Off label use [Unknown]

NARRATIVE: CASE EVENT DATE: 20250101
